FAERS Safety Report 5613644-6 (Version None)
Quarter: 2008Q1

REPORT INFORMATION
  Report Type: 
  Country: None (occurrence: None)
  Receive Date: 20080129
  Receipt Date: 20080116
  Transmission Date: 20080703
  Serious: Yes (Death, Hospitalization, Other)
  Sender: FDA-Public Use
  Company Number: 44405

PATIENT
  Age: 63 Year
  Sex: Male

DRUGS (1)
  1. DACARBAZINE FOR INJ. SP 200MG - BEDFORD LABS, INC. [Suspect]
     Indication: METASTATIC MALIGNANT MELANOMA
     Dosage: 600MG/M2; 700MG/M2; 850 MG/

REACTIONS (3)
  - BLOOD CALCIUM DECREASED [None]
  - CYSTITIS HAEMORRHAGIC [None]
  - METASTASES TO CENTRAL NERVOUS SYSTEM [None]
